FAERS Safety Report 7125022-1 (Version None)
Quarter: 2010Q4

REPORT INFORMATION
  Report Type: 
  Country: None (occurrence: None)
  Receive Date: 20101123
  Receipt Date: 20101123
  Transmission Date: 20110411
  Serious: No
  Sender: FDA-Public Use
  Company Number: None

PATIENT
  Sex: Female
  Weight: 111.1313 kg

DRUGS (2)
  1. VENLAFAXINE HYDROCHLORIDE [Suspect]
     Indication: DEPRESSION
     Dosage: 150 MG 1 A DAY PO
     Route: 048
     Dates: start: 20101008, end: 20101123
  2. VENLAFAXINE HYDROCHLORIDE [Suspect]
     Indication: SOCIAL PHOBIA
     Dosage: 150 MG 1 A DAY PO
     Route: 048
     Dates: start: 20101008, end: 20101123

REACTIONS (7)
  - APATHY [None]
  - CRYING [None]
  - DEPRESSION [None]
  - DIZZINESS [None]
  - HEADACHE [None]
  - HOT FLUSH [None]
  - NAUSEA [None]
